FAERS Safety Report 6377107-5 (Version None)
Quarter: 2009Q3

REPORT INFORMATION
  Report Type: 
  Country: None (occurrence: None)
  Receive Date: 20090925
  Receipt Date: 20090521
  Transmission Date: 20100115
  Serious: No
  Sender: FDA-Public Use
  Company Number: US-BAYER-200921424NA

PATIENT
  Age: 58 Year
  Sex: Female
  Weight: 68 kg

DRUGS (8)
  1. CLIMARA [Suspect]
     Indication: HORMONE REPLACEMENT THERAPY
     Route: 062
     Dates: start: 20040801
  2. CLIMARA [Suspect]
     Route: 062
     Dates: start: 20080101
  3. CLIMARA [Suspect]
     Route: 062
     Dates: start: 20090401
  4. CLIMARA [Suspect]
     Route: 062
     Dates: start: 20080501
  5. CLIMARA [Suspect]
     Route: 062
     Dates: start: 20040401
  6. CLIMARA [Suspect]
     Route: 062
     Dates: start: 20050101
  7. PROMETRIUM [Suspect]
     Indication: HORMONE REPLACEMENT THERAPY
     Dosage: 12 DAYS PER MONTH
     Route: 048
     Dates: start: 20040401
  8. PROMETRIUM [Suspect]
     Dosage: 12 DAYS PER MONTH
     Route: 048
     Dates: start: 20080101

REACTIONS (4)
  - BREAST TENDERNESS [None]
  - ENDOMETRIAL DISORDER [None]
  - HOT FLUSH [None]
  - VAGINAL HAEMORRHAGE [None]
